FAERS Safety Report 5764208-5 (Version None)
Quarter: 2008Q2

REPORT INFORMATION
  Report Type: 
  Country: None (occurrence: None)
  Receive Date: 20080604
  Receipt Date: 20080520
  Transmission Date: 20081010
  Serious: Yes (Hospitalization)
  Sender: FDA-Public Use
  Company Number: 2008AL005585

PATIENT
  Age: 67 Year
  Sex: Male
  Weight: 74.8435 kg

DRUGS (11)
  1. DIGOXIN [Suspect]
     Indication: CARDIAC FAILURE CONGESTIVE
     Dosage: 0.125MG PO; SEVERAL YEARS
     Route: 048
  2. OXYGEN [Concomitant]
  3. LANOXIN [Concomitant]
  4. ISOSORBIDE DINITRATE [Concomitant]
  5. BUSPAR [Concomitant]
  6. COZAAR [Concomitant]
  7. LOVASTATIN [Concomitant]
  8. COUMADIN [Concomitant]
  9. LASIX [Concomitant]
  10. POTASSIUM CHLORIDE [Concomitant]
  11. XANAX [Concomitant]

REACTIONS (2)
  - DRUG LEVEL FLUCTUATING [None]
  - MYOCARDIAL INFARCTION [None]
